FAERS Safety Report 8954466 (Version 1)
Quarter: 2012Q4

REPORT INFORMATION
  Report Type: 
  Country: AT (occurrence: AT)
  Receive Date: 20121207
  Receipt Date: 20121207
  Transmission Date: 20130627
  Serious: Yes (Other)
  Sender: FDA-Public Use
  Company Number: AT-B.I. PHARMACEUTICALS,INC./RIDGEFIELD-2012-AP-01073AP

PATIENT
  Age: 79 Year
  Sex: Female
  Weight: 75 kg

DRUGS (5)
  1. PRADAXA [Suspect]
     Indication: ATRIAL FIBRILLATION
     Dosage: 220 mg
     Route: 048
  2. SPIRONOLACTONE [Suspect]
     Dosage: 5 mg
     Route: 048
  3. SEDACORON [Concomitant]
     Dosage: 200 mg
     Route: 048
  4. LOSARTAN [Concomitant]
     Dosage: 50 mg
     Route: 048
  5. LASIX [Concomitant]
     Dosage: 20 mg

REACTIONS (3)
  - Diarrhoea [Recovered/Resolved]
  - Hyperkalaemia [Recovered/Resolved]
  - Paralysis [Recovered/Resolved]
